FAERS Safety Report 5793037-1 (Version None)
Quarter: 2008Q2

REPORT INFORMATION
  Report Type: 
  Country: None (occurrence: None)
  Receive Date: 20080627
  Receipt Date: 20080624
  Transmission Date: 20081010
  Serious: Yes (Hospitalization)
  Sender: FDA-Public Use
  Company Number: JP-AVENTIS-200810505JP

PATIENT
  Age: 37 Year
  Sex: Female
  Weight: 46.5 kg

DRUGS (9)
  1. LASIX [Suspect]
     Route: 048
     Dates: start: 20040611, end: 20040624
  2. LOXONIN                            /00890701/ [Suspect]
     Indication: SEPSIS
     Route: 048
     Dates: start: 20050615, end: 20050617
  3. VANCOMYCIN HYDROCHLORIDE [Suspect]
     Indication: SEPSIS
     Dates: start: 20050617, end: 20050624
  4. GENTACIN [Suspect]
     Indication: PNEUMONIA
     Dates: start: 20050617, end: 20050618
  5. ASPIRIN [Suspect]
     Route: 048
     Dates: start: 20050611, end: 20050624
  6. CLARITHROMYCIN [Suspect]
     Route: 048
     Dates: start: 20050615, end: 20050617
  7. ALDACTONE [Suspect]
     Route: 048
     Dates: start: 20050609, end: 20050617
  8. MUCOSTA [Suspect]
     Indication: GASTRITIS
     Route: 048
     Dates: start: 20050615, end: 20050617
  9. ACECOL [Suspect]
     Route: 048
     Dates: start: 20050611, end: 20050624

REACTIONS (1)
  - TOXIC EPIDERMAL NECROLYSIS [None]
